FAERS Safety Report 4980273-7 (Version None)
Quarter: 2006Q2

REPORT INFORMATION
  Report Type: 
  Country: None (occurrence: None)
  Receive Date: 20060418
  Receipt Date: 20060403
  Transmission Date: 20061013
  Serious: Yes (Other)
  Sender: FDA-Public Use
  Company Number: 2006-BP-03844RO

PATIENT
  Age: 41 Year
  Sex: Female

DRUGS (2)
  1. METHOTREXATE [Suspect]
     Indication: NON-HODGKIN'S LYMPHOMA
  2. CYTARABINE [Suspect]
     Indication: NON-HODGKIN'S LYMPHOMA

REACTIONS (8)
  - BLISTER [None]
  - BURNING SENSATION [None]
  - ERYTHEMA [None]
  - HERPES ZOSTER [None]
  - PANCYTOPENIA [None]
  - RECALL PHENOMENON [None]
  - SKIN HYPERPIGMENTATION [None]
  - SKIN REACTION [None]
